FAERS Safety Report 4971555-3 (Version None)
Quarter: 2006Q2

REPORT INFORMATION
  Report Type: 
  Country: None (occurrence: None)
  Receive Date: 20060413
  Receipt Date: 20060407
  Transmission Date: 20061013
  Serious: Yes (Hospitalization)
  Sender: FDA-Public Use
  Company Number: PHRM2006FR01307

PATIENT
  Sex: Female

DRUGS (3)
  1. ARACYTINE [Concomitant]
  2. ANTICOAGULANTS [Concomitant]
     Indication: ATRIAL FIBRILLATION
     Route: 048
  3. GLEEVEC [Suspect]
     Indication: CHRONIC MYELOID LEUKAEMIA
     Dosage: 500 MG/DAY
     Route: 048
     Dates: start: 20000701

REACTIONS (3)
  - CARDIAC AMYLOIDOSIS [None]
  - CARDIAC FAILURE ACUTE [None]
  - EJECTION FRACTION DECREASED [None]
